FAERS Safety Report 6094237-6 (Version None)
Quarter: 2009Q1

REPORT INFORMATION
  Report Type: 
  Country: None (occurrence: None)
  Receive Date: 20090225
  Receipt Date: 20090225
  Transmission Date: 20090719
  Serious: Yes (Life-Threatening)
  Sender: FDA-Public Use
  Company Number: None

PATIENT
  Age: 54 Year
  Sex: Female
  Weight: 79.3795 kg

DRUGS (1)
  1. 4-AMINOPYRIDINE 10 MG. TABS BID HOME CARE COMPOUNDING [Suspect]
     Indication: MULTIPLE SCLEROSIS
     Dosage: 10 MG BID PO
     Route: 048
     Dates: start: 20090219, end: 20090219

REACTIONS (5)
  - BLOOD PRESSURE DIASTOLIC INCREASED [None]
  - DISORIENTATION [None]
  - FATIGUE [None]
  - MALAISE [None]
  - MUSCLE CONTRACTIONS INVOLUNTARY [None]
